FAERS Safety Report 9455690 (Version 1)
Quarter: 2013Q3

REPORT INFORMATION
  Report Type: Spontaneous
  Country: GB (occurrence: GB)
  Receive Date: 20130813
  Receipt Date: 20130813
  Transmission Date: 20140515
  Serious: Yes (Disabling)
  Sender: FDA-Public Use
  Company Number: GB-PFIZER INC-2013231287

PATIENT
  Age: 51 Year
  Sex: Female

DRUGS (7)
  1. CHAMPIX [Suspect]
     Indication: SMOKING CESSATION THERAPY
     Dosage: UNK
  2. VALSARTAN [Concomitant]
     Dosage: UNK
  3. ATORVASTATIN [Concomitant]
     Dosage: UNK
  4. GLICLAZIDE [Concomitant]
     Dosage: UNK
  5. METOCLOPRAMIDE [Concomitant]
     Dosage: UNK
  6. METFORMIN [Concomitant]
     Dosage: UNK
  7. ACETYLSALICYLIC ACID [Concomitant]
     Dosage: UNK

REACTIONS (2)
  - Blepharospasm [Not Recovered/Not Resolved]
  - Nightmare [Unknown]
